FAERS Safety Report 10784532 (Version 2)
Quarter: 2015Q1

REPORT INFORMATION
  Report Type: Report from Study
  Country: US (occurrence: US)
  Receive Date: 20150211
  Receipt Date: 20150302
  Transmission Date: 20150721
  Serious: No
  Sender: FDA-Public Use
  Company Number: US-AMGEN-USASL2015011498

PATIENT
  Age: 60 Year
  Sex: Female

DRUGS (1)
  1. ENBREL [Suspect]
     Active Substance: ETANERCEPT
     Indication: PSORIASIS
     Dosage: 50 MG, QWK
     Route: 058
     Dates: start: 201412

REACTIONS (5)
  - Upper respiratory tract infection [Recovering/Resolving]
  - Sinus disorder [Unknown]
  - Injection site bruising [Unknown]
  - Ear congestion [Unknown]
  - Nasopharyngitis [Unknown]
